FAERS Safety Report 9516447 (Version 1)
Quarter: 2013Q3

REPORT INFORMATION
  Report Type: Spontaneous
  Country: FR (occurrence: FR)
  Receive Date: 20130911
  Receipt Date: 20130911
  Transmission Date: 20140515
  Serious: Yes (Hospitalization)
  Sender: FDA-Public Use
  Company Number: FR-PFIZER INC-2013256526

PATIENT
  Age: 82 Year
  Sex: Female

DRUGS (10)
  1. TYGACIL [Suspect]
     Indication: SEPSIS
     Dosage: 50 MG, 2X/DAY
     Route: 042
     Dates: start: 20130411, end: 20130503
  2. EUPANTOL [Concomitant]
     Dosage: 20 MG, UNK
     Route: 048
     Dates: start: 201212
  3. CONTRAMAL [Concomitant]
     Dosage: UNK
     Route: 048
     Dates: start: 201212
  4. MERONEM [Concomitant]
     Indication: SEPSIS
     Dosage: UNK
     Route: 042
     Dates: start: 20130413
  5. HYDROCORTISONE [Concomitant]
     Dosage: UNK
     Route: 048
     Dates: start: 201212
  6. IMOVANE [Concomitant]
     Dosage: 7.5 MG, UNK
     Route: 048
     Dates: start: 201212
  7. LASILIX FAIBLE [Concomitant]
     Dosage: 20 MG, UNK
     Route: 048
     Dates: start: 201301
  8. NOVONORM [Concomitant]
     Dosage: 0.5 MG, UNK
     Route: 048
     Dates: start: 201301
  9. SEROPRAM [Concomitant]
     Dosage: 20 MG, UNK
     Route: 048
     Dates: start: 201212, end: 20130516
  10. TIENAM [Concomitant]
     Indication: SEPSIS
     Dosage: UNK
     Dates: end: 20130412

REACTIONS (7)
  - General physical health deterioration [Recovered/Resolved]
  - Vomiting [Recovered/Resolved]
  - Decreased appetite [Recovered/Resolved]
  - Hypofibrinogenaemia [Recovered/Resolved]
  - Coagulation factor decreased [Recovered/Resolved]
  - Hypoprothrombinaemia [Recovered/Resolved]
  - Renal tubular disorder [Recovering/Resolving]
